FAERS Safety Report 22797352 (Version 6)
Quarter: 2024Q1

REPORT INFORMATION
  Report Type: Spontaneous
  Country: JP (occurrence: JP)
  Receive Date: 20230808
  Receipt Date: 20240125
  Transmission Date: 20240410
  Serious: Yes (Hospitalization, Other)
  Sender: FDA-Public Use
  Company Number: JP-ASTELLAS-2023JP007394

PATIENT
  Age: 66 Year
  Sex: Female

DRUGS (10)
  1. PADCEV [Suspect]
     Active Substance: ENFORTUMAB VEDOTIN-EJFV
     Indication: Transitional cell carcinoma
     Dosage: 1.25 MG/KG, ONCE WEEKLY IN 3 CONSECUTIVE WEEKS, AND THEN INTERRUPTED IN THE 4TH WEEK
     Route: 041
     Dates: start: 20230530, end: 20230711
  2. PADCEV [Suspect]
     Active Substance: ENFORTUMAB VEDOTIN-EJFV
     Route: 041
     Dates: start: 20230829
  3. PADCEV [Suspect]
     Active Substance: ENFORTUMAB VEDOTIN-EJFV
     Dosage: 0.75 MG/KG, UNKNOWN FREQ.
     Route: 041
     Dates: start: 20231128
  4. GEMCITABINE [Concomitant]
     Active Substance: GEMCITABINE
     Indication: Product used for unknown indication
     Dosage: UNK UNK, UNKNOWN FREQ.
     Route: 065
  5. CISPLATIN [Concomitant]
     Active Substance: CISPLATIN
     Indication: Product used for unknown indication
     Dosage: UNK UNK, UNKNOWN FREQ.
     Route: 065
  6. HERBALS [Concomitant]
     Active Substance: HERBALS
     Indication: Gastrointestinal procedural complication
     Route: 048
     Dates: start: 20230315
  7. MAGNESIUM OXIDE [Concomitant]
     Active Substance: MAGNESIUM OXIDE
     Indication: Gastrointestinal procedural complication
     Route: 048
     Dates: start: 20230515
  8. PREDONINE [Concomitant]
     Active Substance: PREDNISOLONE
     Indication: Rash
     Route: 048
     Dates: start: 20230704
  9. GLYCOSAMINOGLYCANS [Concomitant]
     Active Substance: GLYCOSAMINOGLYCANS
     Indication: Rash
     Dosage: UNK UNK, UNKNOWN FREQ.
     Route: 050
     Dates: start: 20230704
  10. FILGRASTIM [Concomitant]
     Active Substance: FILGRASTIM
     Indication: Neutropenia
     Route: 041
     Dates: start: 20230711

REACTIONS (8)
  - Neuropathy peripheral [Not Recovered/Not Resolved]
  - Pigmentation disorder [Not Recovered/Not Resolved]
  - Hepatic function abnormal [Recovered/Resolved]
  - Alopecia [Not Recovered/Not Resolved]
  - Pruritus [Recovered/Resolved]
  - Neutrophil count decreased [Not Recovered/Not Resolved]
  - Rash [Recovered/Resolved]
  - Ileus [Recovered/Resolved]

NARRATIVE: CASE EVENT DATE: 20230620
